FAERS Safety Report 17021147 (Version 1)
Quarter: 2019Q4

REPORT INFORMATION
  Report Type: Spontaneous
  Country: US (occurrence: US)
  Receive Date: 20191112
  Receipt Date: 20191112
  Transmission Date: 20200122
  Serious: Yes (Other)
  Sender: FDA-Public Use
  Company Number: US-TEVA-2019-US-1135221

PATIENT
  Age: 71 Year
  Sex: Male

DRUGS (1)
  1. CARVEDILOL. [Suspect]
     Active Substance: CARVEDILOL
     Dosage: TWO DOSES ADMINISTERED 11H APART
     Route: 048

REACTIONS (2)
  - Inappropriate schedule of product administration [Unknown]
  - Shock [Recovered/Resolved]
